FAERS Safety Report 13209717 (Version 1)
Quarter: 2017Q1

REPORT INFORMATION
  Report Type: Other
  Country: US (occurrence: US)
  Receive Date: 20170209
  Receipt Date: 20170209
  Transmission Date: 20170428
  Serious: Yes (Hospitalization, Other)
  Sender: FDA-Public Use
  Company Number: US-SHIRE-US201702203

PATIENT
  Sex: Female

DRUGS (1)
  1. GATTEX [Suspect]
     Active Substance: TEDUGLUTIDE\WATER
     Indication: SHORT-BOWEL SYNDROME
     Dosage: UNK, 1X/DAY:QD (NIGHTLY)
     Route: 058

REACTIONS (4)
  - Fear [Unknown]
  - Gastrointestinal obstruction [Recovered/Resolved]
  - Frustration tolerance decreased [Unknown]
  - Injection site erythema [Unknown]
